FAERS Safety Report 9099431 (Version 1)
Quarter: 2013Q1

REPORT INFORMATION
  Report Type: Other
  Country: TR (occurrence: TR)
  Receive Date: 20130214
  Receipt Date: 20130214
  Transmission Date: 20140127
  Serious: Yes (Life-Threatening)
  Sender: FDA-Public Use
  Company Number: TR-BRISTOL-MYERS SQUIBB COMPANY-17350505

PATIENT
  Age: 15 Year
  Sex: Female

DRUGS (1)
  1. METFORMIN HCL TABS [Suspect]

REACTIONS (4)
  - Overdose [Unknown]
  - Suicide attempt [Unknown]
  - Lactic acidosis [Unknown]
  - Hypoglycaemia [Unknown]
